FAERS Safety Report 24977168 (Version 1)
Quarter: 2025Q1

REPORT INFORMATION
  Report Type: Spontaneous
  Country: US (occurrence: US)
  Receive Date: 20250217
  Receipt Date: 20250217
  Transmission Date: 20250409
  Serious: Yes (Other)
  Sender: ELI LILLY AND COMPANY
  Company Number: US-ELI_LILLY_AND_COMPANY-US202502004609

PATIENT
  Age: 70 Year

DRUGS (1)
  1. TALTZ [Suspect]
     Active Substance: IXEKIZUMAB
     Indication: Product used for unknown indication
     Route: 065

REACTIONS (6)
  - Systemic lupus erythematosus [Unknown]
  - Pain [Unknown]
  - Fall [Unknown]
  - Injury [Unknown]
  - Dysphagia [Unknown]
  - Product dose omission issue [Unknown]
